FAERS Safety Report 7369605-2 (Version None)
Quarter: 2011Q1

REPORT INFORMATION
  Report Type: 
  Country: None (occurrence: None)
  Receive Date: 20110323
  Receipt Date: 20110317
  Transmission Date: 20110831
  Serious: Yes (Death)
  Sender: FDA-Public Use
  Company Number: US-MERCK-1103USA02297

PATIENT
  Sex: Male

DRUGS (2)
  1. ZOCOR [Suspect]
     Route: 048
  2. LIPITOR [Suspect]
     Route: 065

REACTIONS (4)
  - DEATH [None]
  - PAIN [None]
  - ADVERSE EVENT [None]
  - PULMONARY FIBROSIS [None]
